FAERS Safety Report 6919258-X (Version None)
Quarter: 2010Q3

REPORT INFORMATION
  Report Type: 
  Country: None (occurrence: None)
  Receive Date: 20100811
  Receipt Date: 20100806
  Transmission Date: 20110219
  Serious: Yes (Other)
  Sender: FDA-Public Use
  Company Number: BR-ROCHE-719821

PATIENT
  Sex: Male
  Weight: 59 kg

DRUGS (3)
  1. RIVOTRIL [Suspect]
     Indication: INSOMNIA
     Route: 048
     Dates: start: 20070101, end: 20070101
  2. RIVOTRIL [Suspect]
     Dosage: DOSE: 2.5 MG/ML
     Route: 065
     Dates: start: 20100805
  3. CLONAZEPAM [Suspect]
     Indication: INSOMNIA
     Route: 065
     Dates: start: 20070101, end: 20100803

REACTIONS (4)
  - ABDOMINAL ADHESIONS [None]
  - CALCULUS BLADDER [None]
  - CALCULUS URETERIC [None]
  - DRUG INEFFECTIVE [None]
